FAERS Safety Report 20506538 (Version 34)
Quarter: 2025Q1

REPORT INFORMATION
  Report Type: Report from Study
  Country: US (occurrence: US)
  Receive Date: 20220223
  Receipt Date: 20250328
  Transmission Date: 20250408
  Serious: Yes (Other)
  Sender: TAKEDA
  Company Number: US-TAKEDA-2021TUS020198

PATIENT
  Age: 62 Year
  Sex: Female
  Weight: 112 kg

DRUGS (63)
  1. HUMAN IMMUNOGLOBULIN G [Suspect]
     Active Substance: HUMAN IMMUNOGLOBULIN G
     Indication: Immunodeficiency common variable
     Dosage: 40 GRAM, Q4WEEKS
     Dates: start: 20210409
  2. HUMAN IMMUNOGLOBULIN G [Suspect]
     Active Substance: HUMAN IMMUNOGLOBULIN G
     Dosage: 45 GRAM, Q4WEEKS
     Dates: start: 20210411
  3. HUMAN IMMUNOGLOBULIN G [Suspect]
     Active Substance: HUMAN IMMUNOGLOBULIN G
     Dosage: 45 GRAM, Q4WEEKS
     Dates: start: 20210930
  4. HUMAN IMMUNOGLOBULIN G [Suspect]
     Active Substance: HUMAN IMMUNOGLOBULIN G
     Dosage: 45 GRAM, Q4WEEKS
  5. HUMAN IMMUNOGLOBULIN G [Suspect]
     Active Substance: HUMAN IMMUNOGLOBULIN G
     Dosage: 65 GRAM, Q4WEEKS
  6. HUMAN IMMUNOGLOBULIN G [Suspect]
     Active Substance: HUMAN IMMUNOGLOBULIN G
     Dosage: 55 GRAM, Q4WEEKS
  7. HUMAN IMMUNOGLOBULIN G [Suspect]
     Active Substance: HUMAN IMMUNOGLOBULIN G
     Dosage: 35 GRAM, Q2WEEKS
  8. ACETAMINOPHEN [Concomitant]
     Active Substance: ACETAMINOPHEN
  9. EPINEPHRINE [Concomitant]
     Active Substance: EPINEPHRINE
  10. DICYCLOMINE HYDROCHLORIDE [Concomitant]
     Active Substance: DICYCLOMINE HYDROCHLORIDE
  11. CRESTOR [Concomitant]
     Active Substance: ROSUVASTATIN CALCIUM
  12. NASACORT [Concomitant]
     Active Substance: TRIAMCINOLONE ACETONIDE
  13. FOLIC ACID [Concomitant]
     Active Substance: FOLIC ACID
  14. PREDNISONE [Concomitant]
     Active Substance: PREDNISONE
  15. PILOCARPINE HYDROCHLORIDE [Concomitant]
     Active Substance: PILOCARPINE HYDROCHLORIDE
  16. ZEPBOUND [Concomitant]
     Active Substance: TIRZEPATIDE
  17. OFLOXACIN [Concomitant]
     Active Substance: OFLOXACIN
  18. FIORICET [Concomitant]
     Active Substance: ACETAMINOPHEN\BUTALBITAL\CAFFEINE
  19. SINGULAIR [Concomitant]
     Active Substance: MONTELUKAST SODIUM
  20. ADVAIR HFA [Concomitant]
     Active Substance: FLUTICASONE PROPIONATE\SALMETEROL XINAFOATE
  21. SODIUM CHLORIDE [Concomitant]
     Active Substance: SODIUM CHLORIDE
  22. PAXLOVID [Concomitant]
     Active Substance: NIRMATRELVIR\RITONAVIR
  23. LEVOTHYROXINE [Concomitant]
     Active Substance: LEVOTHYROXINE
  24. LASIX [Concomitant]
     Active Substance: FUROSEMIDE
  25. ALBUTEROL SULFATE [Concomitant]
     Active Substance: ALBUTEROL SULFATE
  26. LEXAPRO [Concomitant]
     Active Substance: ESCITALOPRAM OXALATE
  27. PROPAFENONE HCL [Concomitant]
     Active Substance: PROPAFENONE HYDROCHLORIDE
  28. ELIQUIS [Concomitant]
     Active Substance: APIXABAN
  29. VITAMIN D3 [Concomitant]
     Active Substance: CHOLECALCIFEROL
  30. LIDOCAINE [Concomitant]
     Active Substance: LIDOCAINE
  31. BENZONATATE [Concomitant]
     Active Substance: BENZONATATE
  32. COSENTYX [Concomitant]
     Active Substance: SECUKINUMAB
  33. NURTEC ODT [Concomitant]
     Active Substance: RIMEGEPANT SULFATE
  34. METOPROLOL SUCCINATE [Concomitant]
     Active Substance: METOPROLOL SUCCINATE
  35. PROMETHAZINE [Concomitant]
     Active Substance: PROMETHAZINE HYDROCHLORIDE
  36. OXYGEN [Concomitant]
     Active Substance: OXYGEN
  37. SPIRIVA RESPIMAT [Concomitant]
     Active Substance: TIOTROPIUM BROMIDE
  38. DIPHENHYDRAMINE HYDROCHLORIDE [Concomitant]
     Active Substance: DIPHENHYDRAMINE HYDROCHLORIDE
  39. MINERALS\VITAMINS [Concomitant]
     Active Substance: MINERALS\VITAMINS
  40. OXYCODONE [Concomitant]
     Active Substance: OXYCODONE
  41. TOPIRAMATE [Concomitant]
     Active Substance: TOPIRAMATE
  42. DEXILANT [Concomitant]
     Active Substance: DEXLANSOPRAZOLE
  43. METHOTREXATE [Concomitant]
     Active Substance: METHOTREXATE
  44. DIPHENHYDRAMINE [Concomitant]
     Active Substance: DIPHENHYDRAMINE
  45. ALBUTEROL [Concomitant]
     Active Substance: ALBUTEROL
  46. DICYCLOMINE [Concomitant]
     Active Substance: DICYCLOMINE HYDROCHLORIDE
  47. SYNTHROID [Concomitant]
     Active Substance: LEVOTHYROXINE SODIUM
  48. IMURAN [Concomitant]
     Active Substance: AZATHIOPRINE
  49. MINERALS\VITAMINS [Concomitant]
     Active Substance: MINERALS\VITAMINS
  50. CLINDAMYCIN HYDROCHLORIDE [Concomitant]
     Active Substance: CLINDAMYCIN HYDROCHLORIDE
  51. CYMBALTA [Concomitant]
     Active Substance: DULOXETINE HYDROCHLORIDE
  52. HYDROXYZINE PAMOATE [Concomitant]
     Active Substance: HYDROXYZINE PAMOATE
  53. PERCOCET [Concomitant]
     Active Substance: ACETAMINOPHEN\OXYCODONE HYDROCHLORIDE
  54. PROPAFENONE [Concomitant]
     Active Substance: PROPAFENONE
  55. AZITHROMYCIN [Concomitant]
     Active Substance: AZITHROMYCIN
  56. METOPROLOL [Concomitant]
     Active Substance: METOPROLOL
  57. ACIDOPHILUS [Concomitant]
     Active Substance: LACTOBACILLUS ACIDOPHILUS
  58. SULFASALAZINE [Concomitant]
     Active Substance: SULFASALAZINE
  59. CEPHALEXIN [Concomitant]
     Active Substance: CEPHALEXIN
  60. HYDROCODONE [Concomitant]
     Active Substance: HYDROCODONE
  61. OXYCODONE AND ACETAMINOPHEN [Concomitant]
     Active Substance: ACETAMINOPHEN\OXYCODONE HYDROCHLORIDE
  62. PROMETHAZINE DM [Concomitant]
     Active Substance: DEXTROMETHORPHAN HYDROBROMIDE\PROMETHAZINE HYDROCHLORIDE
  63. RIZATRIPTAN [Concomitant]
     Active Substance: RIZATRIPTAN

REACTIONS (44)
  - Hepatic fibrosis [Unknown]
  - Mastoiditis [Unknown]
  - Lower respiratory tract infection [Unknown]
  - Tooth infection [Unknown]
  - Oxygen saturation abnormal [Unknown]
  - Illness [Unknown]
  - Gingivitis [Unknown]
  - Urinary tract infection [Unknown]
  - Neck pain [Unknown]
  - COVID-19 [Unknown]
  - Labyrinthitis [Unknown]
  - Fungal infection [Unknown]
  - Nasal discomfort [Recovering/Resolving]
  - Ear infection [Unknown]
  - Infection [Unknown]
  - Weight increased [Unknown]
  - Paranasal sinus hypersecretion [Unknown]
  - Sinus congestion [Unknown]
  - Nasopharyngitis [Unknown]
  - Eye disorder [Unknown]
  - Meibomian gland dysfunction [Unknown]
  - Productive cough [Unknown]
  - Sinusitis [Unknown]
  - Influenza [Unknown]
  - Ear pain [Unknown]
  - Pain [Unknown]
  - Vertigo [Unknown]
  - Body temperature increased [Unknown]
  - Lymphadenopathy [Not Recovered/Not Resolved]
  - Oropharyngeal pain [Recovering/Resolving]
  - Malaise [Unknown]
  - Cough [Recovering/Resolving]
  - Chest discomfort [Recovering/Resolving]
  - Dyspnoea [Unknown]
  - Pain in extremity [Unknown]
  - Pyrexia [Recovered/Resolved]
  - Vomiting [Unknown]
  - Fatigue [Recovering/Resolving]
  - Headache [Unknown]
  - Diarrhoea [Unknown]
  - Migraine [Unknown]
  - Eye pain [Unknown]
  - Rhinorrhoea [Unknown]
  - Wheezing [Unknown]

NARRATIVE: CASE EVENT DATE: 20220113
